FAERS Safety Report 8207413-0 (Version None)
Quarter: 2012Q1

REPORT INFORMATION
  Report Type: 
  Country: None (occurrence: None)
  Receive Date: 20120314
  Receipt Date: 20120305
  Transmission Date: 20120608
  Serious: Yes (Hospitalization)
  Sender: FDA-Public Use
  Company Number: US-ASTRAZENECA-2011SE76791

PATIENT
  Age: 25069 Day
  Sex: Female

DRUGS (34)
  1. FUROSEMIDE [Concomitant]
     Route: 048
  2. ACETAMINOPHEN [Concomitant]
     Indication: PAIN
     Route: 048
  3. IBUPROFEN [Concomitant]
     Indication: PAIN
     Dosage: AS NEEDED
     Route: 048
  4. CLOPIDOGREL [Concomitant]
     Indication: ANTIPLATELET THERAPY
     Dates: start: 20090912
  5. FISH OIL [Concomitant]
     Indication: HYPERLIPIDAEMIA
     Route: 048
     Dates: end: 20111207
  6. FUROSEMIDE [Concomitant]
     Route: 048
  7. AMLODIPINE [Concomitant]
     Route: 048
     Dates: start: 20110831, end: 20111207
  8. VITAMIN D [Concomitant]
     Indication: VITAMIN SUPPLEMENTATION
     Route: 048
     Dates: end: 20111207
  9. FLAX OIL [Concomitant]
     Indication: HYPERLIPIDAEMIA
     Route: 048
     Dates: end: 20111207
  10. CINNAMON+CHROM [Concomitant]
     Indication: VITAMIN SUPPLEMENTATION
     Route: 048
     Dates: end: 20111207
  11. ENALAPRIL MALEATE [Concomitant]
     Indication: HYPERTENSION
     Route: 048
     Dates: end: 20111207
  12. PLAVIX [Suspect]
     Indication: CORONARY ARTERY DISEASE
     Route: 048
     Dates: start: 20110825, end: 20111101
  13. JANUVIA [Concomitant]
     Indication: TYPE 2 DIABETES MELLITUS
     Route: 048
     Dates: end: 20111207
  14. PROMETHAZINE [Concomitant]
     Indication: NAUSEA
     Route: 048
  15. AMLODIPINE [Concomitant]
     Indication: HYPERTENSION
     Route: 048
     Dates: end: 20110831
  16. ADVAIR DISKUS 100/50 [Concomitant]
     Indication: ASTHMA
     Dosage: 100/50 ONE PUFF TWICE DAILY
     Route: 055
  17. CALCIUM+VITAMIN D [Concomitant]
     Indication: VITAMIN SUPPLEMENTATION
     Route: 048
     Dates: end: 20111207
  18. FUROSEMIDE [Concomitant]
     Indication: HYPERTENSION
     Route: 048
     Dates: end: 20111207
  19. PLAVIX [Suspect]
     Route: 048
     Dates: start: 20111117, end: 20111207
  20. ASPIRIN [Concomitant]
     Route: 048
     Dates: start: 20110824
  21. SIMVASTATIN [Concomitant]
     Indication: HYPERLIPIDAEMIA
     Route: 048
  22. METOPROLOL SUCCINATE [Concomitant]
     Indication: ISCHAEMIC HEART DISEASE PROPHYLAXIS
     Route: 048
     Dates: end: 20111207
  23. FUROSEMIDE [Concomitant]
     Indication: OEDEMA
     Route: 048
     Dates: end: 20111207
  24. MULTIPLE VITAMIN [Concomitant]
     Indication: VITAMIN SUPPLEMENTATION
     Route: 048
     Dates: end: 20111207
  25. LOSARTAN POTASSIUM [Concomitant]
     Indication: HYPERTENSION
     Route: 048
     Dates: end: 20111207
  26. VITAMIN B-12 [Concomitant]
     Indication: VITAMIN SUPPLEMENTATION
     Route: 048
  27. CRANBERRY FRUIT WITH VITAMIN C [Concomitant]
     Indication: VITAMIN SUPPLEMENTATION
     Route: 048
  28. AMILORIDE HCL AND HYDROCHLOROTHIAZIDE [Concomitant]
     Indication: HYPERTENSION
     Dosage: 5/50 EVERY MORNING
     Route: 048
     Dates: end: 20111207
  29. VENTOLIN HFA [Concomitant]
  30. VESICARE [Concomitant]
     Indication: BLADDER DISORDER
     Route: 048
  31. HYDROCODONE BITARTRATE AND ACETAMINOPHEN [Concomitant]
     Indication: PAIN
     Dosage: 5/500 AS NEEDED
     Route: 048
     Dates: end: 20111207
  32. MECLIZINE [Concomitant]
     Indication: DIZZINESS
     Route: 048
  33. ALLOPURINOL [Concomitant]
     Indication: BLOOD URIC ACID INCREASED
     Route: 048
  34. ACAI [Concomitant]
     Indication: VITAMIN SUPPLEMENTATION
     Route: 048
     Dates: end: 20111207

REACTIONS (2)
  - RENAL FAILURE ACUTE [None]
  - ATRIOVENTRICULAR BLOCK SECOND DEGREE [None]
